FAERS Safety Report 11368688 (Version 1)
Quarter: 2015Q3

REPORT INFORMATION
  Report Type: Spontaneous
  Country: AU (occurrence: AU)
  Receive Date: 20150812
  Receipt Date: 20150812
  Transmission Date: 20151125
  Serious: Yes (Other)
  Sender: FDA-Public Use
  Company Number: AU-INDOCO-000007

PATIENT
  Age: 61 Year
  Sex: Male

DRUGS (3)
  1. MINOCYCLINE [Suspect]
     Active Substance: MINOCYCLINE\MINOCYCLINE HYDROCHLORIDE
     Indication: FLUSHING
  2. CLONIDINE. [Suspect]
     Active Substance: CLONIDINE
     Indication: FLUSHING
  3. BRIMONIDINE [Suspect]
     Active Substance: BRIMONIDINE TARTRATE
     Indication: FLUSHING
     Dosage: EYE DROPS IN AQUEOUS CREAM

REACTIONS (1)
  - Dermatitis contact [Recovered/Resolved]
